FAERS Safety Report 11363077 (Version 1)
Quarter: 2015Q3

REPORT INFORMATION
  Report Type: Spontaneous
  Country: DK (occurrence: CH)
  Receive Date: 20150810
  Receipt Date: 20150810
  Transmission Date: 20151125
  Serious: Yes (Congenital Anomaly, Other)
  Sender: FDA-Public Use
  Company Number: CH-FRI-1000078893

PATIENT
  Sex: Female
  Weight: 2.5 kg

DRUGS (2)
  1. ESCITALOPRAM [Suspect]
     Active Substance: ESCITALOPRAM OXALATE
     Indication: DEPRESSION
     Route: 064
     Dates: start: 2014
  2. XANAX [Suspect]
     Active Substance: ALPRAZOLAM
     Indication: INSOMNIA
     Route: 064
     Dates: start: 2014, end: 201408

REACTIONS (2)
  - Foetal exposure during pregnancy [Recovered/Resolved]
  - Oesophageal atresia [Unknown]

NARRATIVE: CASE EVENT DATE: 2014
